FAERS Safety Report 9820991 (Version 2)
Quarter: 2014Q1

REPORT INFORMATION
  Report Type: Spontaneous
  Country: CA (occurrence: CA)
  Receive Date: 20140116
  Receipt Date: 20140205
  Transmission Date: 20141002
  Serious: Yes (Hospitalization)
  Sender: FDA-Public Use
  Company Number: CA-BRISTOL-MYERS SQUIBB COMPANY-19985720

PATIENT
  Age: 37 Year
  Sex: Male

DRUGS (14)
  1. ABILIFY TABS [Suspect]
     Dosage: BQU2322390
  2. BISACODYL [Concomitant]
  3. SYNTHROID [Concomitant]
  4. SUCRALFATE [Concomitant]
  5. QUETIAPINE [Concomitant]
  6. BENADRYL [Concomitant]
  7. PREVACID [Concomitant]
  8. LACTULOSE [Concomitant]
  9. ATIVAN [Concomitant]
  10. FLOVENT [Concomitant]
  11. URSODIOL [Concomitant]
  12. LACTAID [Concomitant]
  13. VALPROIC ACID [Concomitant]
  14. DOMPERIDONE [Concomitant]

REACTIONS (2)
  - Gastrointestinal obstruction [Unknown]
  - Wrong technique in drug usage process [Unknown]
